FAERS Safety Report 25753205 (Version 2)
Quarter: 2025Q3

REPORT INFORMATION
  Report Type: Spontaneous
  Country: CN (occurrence: CN)
  Receive Date: 20250902
  Receipt Date: 20250911
  Transmission Date: 20251020
  Serious: No
  Sender: BEIGENE
  Company Number: CN-ROCHE-10000033091

PATIENT
  Age: 85 Year
  Weight: 51 kg

DRUGS (20)
  1. BRUKINSA [Suspect]
     Active Substance: ZANUBRUTINIB
     Indication: Diffuse large B-cell lymphoma
  2. RITUXIMAB [Suspect]
     Active Substance: RITUXIMAB
     Indication: Diffuse large B-cell lymphoma
  3. POLATUZUMAB VEDOTIN [Suspect]
     Active Substance: POLATUZUMAB VEDOTIN
     Indication: Diffuse large B-cell lymphoma
  4. LENALIDOMIDE [Suspect]
     Active Substance: LENALIDOMIDE
     Indication: Diffuse large B-cell lymphoma
  5. LEUCOGEN [Concomitant]
     Active Substance: LEUCOGEN
  6. METFORMIN [Concomitant]
     Active Substance: METFORMIN HYDROCHLORIDE
  7. OMEPRAZOLE [Concomitant]
     Active Substance: OMEPRAZOLE
  8. VITAMIN B COMPLEX [Concomitant]
     Active Substance: CYANOCOBALAMIN\DEXPANTHENOL\NIACINAMIDE\PYRIDOXINE HYDROCHLORIDE\RIBOFLAVIN 5^-PHOSPHATE SODIUM\THIA
  9. SULFAMETHOXAZOLE [Concomitant]
     Active Substance: SULFAMETHOXAZOLE
  10. ACYCLOVIR [Concomitant]
     Active Substance: ACYCLOVIR
  11. ACETAMINOPHEN, ASPIRIN AND CAFFEINE [Concomitant]
     Active Substance: ACETAMINOPHEN\ASPIRIN\CAFFEINE
  12. PREGABALIN [Concomitant]
     Active Substance: PREGABALIN
  13. METHYLCOBALAMIN [Concomitant]
     Active Substance: METHYLCOBALAMIN
  14. PROMETHAZINE HYDROCHLORIDE [Concomitant]
     Active Substance: PROMETHAZINE HYDROCHLORIDE
  15. METHYLPREDNISOLONE SODIUM SUCCINATE [Concomitant]
     Active Substance: METHYLPREDNISOLONE SODIUM SUCCINATE
  16. PREDNISONE ACETATE [Concomitant]
     Active Substance: PREDNISONE ACETATE
  17. HERBALS [Concomitant]
     Active Substance: HERBALS
  18. HERBALS\DIAMMONIUM GLYCYRRHIZINATE [Concomitant]
     Active Substance: HERBALS\DIAMMONIUM GLYCYRRHIZINATE
  19. LEVOFLOXACIN [Concomitant]
     Active Substance: LEVOFLOXACIN
  20. MEROPENEM [Concomitant]
     Active Substance: MEROPENEM

REACTIONS (7)
  - Blood albumin decreased [Unknown]
  - Urinary tract infection [Unknown]
  - Red blood cells urine positive [Unknown]
  - White blood cell count decreased [Unknown]
  - White blood cells urine positive [Unknown]
  - Anaemia [Unknown]
  - Off label use [Unknown]
